FAERS Safety Report 18184956 (Version 1)
Quarter: 2020Q3

REPORT INFORMATION
  Report Type: Spontaneous
  Country: AU (occurrence: AU)
  Receive Date: 20200824
  Receipt Date: 20200824
  Transmission Date: 20201103
  Serious: Yes (Hospitalization, Other)
  Sender: FDA-Public Use
  Company Number: AU-009507513-2008AUS010286

PATIENT
  Sex: Male

DRUGS (2)
  1. KEYTRUDA [Suspect]
     Active Substance: PEMBROLIZUMAB
     Dosage: UNK
     Dates: start: 2017
  2. BCG LIVE [Suspect]
     Active Substance: BACILLUS CALMETTE-GUERIN SUBSTRAIN TICE LIVE ANTIGEN
     Indication: BLADDER CANCER
     Dosage: UNK
     Route: 043
     Dates: start: 2016

REACTIONS (13)
  - Pneumonia aspiration [Unknown]
  - Hypotension [Unknown]
  - Psoriasis [Unknown]
  - Drug ineffective [Unknown]
  - Consciousness fluctuating [Unknown]
  - Post procedural complication [Unknown]
  - Endocrine disorder [Unknown]
  - Scrotal swelling [Unknown]
  - Weight decreased [Unknown]
  - Hypothyroidism [Unknown]
  - Intestinal obstruction [Unknown]
  - Lethargy [Unknown]
  - Postoperative wound complication [Unknown]

NARRATIVE: CASE EVENT DATE: 2018
